FAERS Safety Report 5266114-1 (Version None)
Quarter: 2007Q1

REPORT INFORMATION
  Report Type: 
  Country: None (occurrence: None)
  Receive Date: 20070315
  Receipt Date: 20070303
  Transmission Date: 20070707
  Serious: Yes (Other)
  Sender: FDA-Public Use
  Company Number: PHEH2007US02719

PATIENT
  Sex: Female

DRUGS (1)
  1. FEMARA [Suspect]
     Dates: start: 20070112

REACTIONS (3)
  - ATRIAL FIBRILLATION [None]
  - HEART RATE INCREASED [None]
  - HEART RATE IRREGULAR [None]
